FAERS Safety Report 7590306-X (Version None)
Quarter: 2011Q3

REPORT INFORMATION
  Report Type: 
  Country: None (occurrence: None)
  Receive Date: 20110705
  Receipt Date: 20110627
  Transmission Date: 20111222
  Serious: Yes (Hospitalization, Other)
  Sender: FDA-Public Use
  Company Number: ES-PFIZER INC-2011144056

PATIENT
  Age: 81 Year
  Sex: Female

DRUGS (13)
  1. RABEPRAZOLE SODIUM [Concomitant]
  2. ENOXAPARIN [Suspect]
     Indication: THROMBOSIS PROPHYLAXIS
     Dosage: 40 MG, 1X/DAY
     Route: 058
     Dates: start: 20081118, end: 20081124
  3. SPIRIVA [Concomitant]
  4. ZOCOR [Concomitant]
     Dosage: UNK
     Dates: start: 20081118
  5. LORMETAZEPAM [Concomitant]
     Dosage: UNK
     Dates: start: 20081118
  6. FORMOTEROL FUMARATE [Concomitant]
     Dosage: UNK
     Dates: start: 20081125, end: 20081204
  7. ASPIRIN [Concomitant]
     Dosage: UNK
     Dates: start: 20081118
  8. APIXABAN [Suspect]
     Indication: THROMBOSIS PROPHYLAXIS
     Dosage: 5 MG, 1X/DAY
     Route: 048
     Dates: start: 20081118, end: 20081204
  9. MINITRAN [Concomitant]
     Dosage: UNK
     Dates: start: 20081118
  10. NATECAL D [Concomitant]
     Dosage: UNK
     Dates: start: 20081118
  11. ATORVASTATIN CALCIUM [Suspect]
     Dosage: 40 MG, UNK
     Dates: start: 20081206, end: 20081219
  12. LISINOPRIL [Concomitant]
     Dosage: UNK
     Dates: start: 20081125
  13. SYMBICORT [Concomitant]
     Dosage: UNK
     Dates: start: 20081118

REACTIONS (5)
  - PAPULE [None]
  - ACUTE MYOCARDIAL INFARCTION [None]
  - ASTHMA [None]
  - CARDIAC FAILURE ACUTE [None]
  - ANGINA UNSTABLE [None]
